FAERS Safety Report 18282784 (Version 2)
Quarter: 2020Q3

REPORT INFORMATION
  Report Type: Spontaneous
  Country: US (occurrence: US)
  Receive Date: 20200918
  Receipt Date: 20200921
  Transmission Date: 20201103
  Serious: No
  Sender: FDA-Public Use
  Company Number: US-PFIZER INC-2020343115

PATIENT
  Age: 61 Year
  Sex: Male

DRUGS (1)
  1. LYRICA [Suspect]
     Active Substance: PREGABALIN
     Indication: PAIN
     Dosage: 400 MG, DAILY (100 MG, EVERY AM, 100 MG EVERY NOON, 200 MG EVERY NIGHT AT BEDTIME)
     Route: 048

REACTIONS (1)
  - Therapeutic response shortened [Unknown]
